FAERS Safety Report 5046893-9 (Version None)
Quarter: 2006Q2

REPORT INFORMATION
  Report Type: 
  Country: None (occurrence: None)
  Receive Date: 20060630
  Receipt Date: 20060628
  Transmission Date: 20061013
  Serious: Yes (Life-Threatening, Hospitalization)
  Sender: FDA-Public Use
  Company Number: TCI2006A02286

PATIENT
  Age: 77 Year
  Sex: Male

DRUGS (9)
  1. LEUPROLIDE ACETATE [Suspect]
     Indication: PROSTATE CANCER
     Dosage: (1 IN 28 D) SUBCUTANEOUS
     Route: 058
     Dates: start: 20060405, end: 20060501
  2. URIEF (SILODOSIN) (CAPSULES) [Concomitant]
  3. CHLORMADINONE ACETATE TAB [Concomitant]
  4. ALLOPURINOL TAB [Concomitant]
  5. LASIX [Concomitant]
  6. ASPIRIN [Concomitant]
  7. NORVASC [Concomitant]
  8. NITOROL R (TABLETS) [Concomitant]
  9. MAGNESIUM OXIDE (PREPARATION FOR ORAL USE (NOS)) [Concomitant]

REACTIONS (2)
  - BILE DUCT STONE [None]
  - CHOLESTASIS [None]
